FAERS Safety Report 4502325-8 (Version None)
Quarter: 2004Q4

REPORT INFORMATION
  Report Type: 
  Country: None (occurrence: None)
  Receive Date: 20041116
  Receipt Date: 20041109
  Transmission Date: 20050328
  Serious: Yes (Disabling)
  Sender: FDA-Public Use
  Company Number: GB-GLAXOSMITHKLINE-B0351066A

PATIENT
  Age: 41 Year

DRUGS (1)
  1. AUGMENTIN '125' [Suspect]
     Indication: SINUS DISORDER
     Route: 048
     Dates: start: 20040910, end: 20040930

REACTIONS (3)
  - JAUNDICE [None]
  - LETHARGY [None]
  - LIVER FUNCTION TEST ABNORMAL [None]
